FAERS Safety Report 23284805 (Version 2)
Quarter: 2023Q4

REPORT INFORMATION
  Report Type: Spontaneous
  Country: US (occurrence: US)
  Receive Date: 20231211
  Receipt Date: 20231225
  Transmission Date: 20240110
  Serious: No
  Sender: FDA-Public Use
  Company Number: US-BAUSCH-BL-2023-017951

PATIENT
  Sex: Male

DRUGS (3)
  1. WELLBUTRIN XL [Suspect]
     Active Substance: BUPROPION HYDROCHLORIDE
     Indication: Product used for unknown indication
     Route: 065
  2. WELLBUTRIN XL [Suspect]
     Active Substance: BUPROPION HYDROCHLORIDE
     Route: 065
  3. BUPROPION HYDROCHLORIDE XL [Suspect]
     Active Substance: BUPROPION HYDROCHLORIDE
     Indication: Product used for unknown indication
     Dosage: YICHANG HUBEI CHINA MANUFACTURER AND OTHER MANUFACTURERS (UNSPECIFIED)
     Route: 065

REACTIONS (6)
  - Illness [Recovering/Resolving]
  - Bedridden [Recovering/Resolving]
  - Hair colour changes [Unknown]
  - Depression [Recovering/Resolving]
  - Bruxism [Unknown]
  - Malaise [Unknown]
